FAERS Safety Report 7576080-1 (Version None)
Quarter: 2011Q2

REPORT INFORMATION
  Report Type: 
  Country: None (occurrence: None)
  Receive Date: 20110628
  Receipt Date: 20110622
  Transmission Date: 20111010
  Serious: Yes (Hospitalization)
  Sender: FDA-Public Use
  Company Number: NZ-AMGEN-NZLSP2011030555

PATIENT
  Age: 50 Year
  Weight: 60 kg

DRUGS (6)
  1. VOLTAREN [Concomitant]
     Dosage: UNK
  2. METHOTREXATE SODIUM [Suspect]
     Dosage: UNK
  3. ENBREL [Suspect]
     Indication: RHEUMATOID ARTHRITIS
     Dosage: 50 MG, WEEKLY
     Dates: start: 20110516
  4. INIBACE [Concomitant]
  5. METFORMIN HCL [Concomitant]
     Dosage: UNK
  6. GLICLAZIDE [Concomitant]
     Indication: DIABETES MELLITUS
     Dosage: UNK

REACTIONS (3)
  - PNEUMONITIS [None]
  - INFECTION [None]
  - DIARRHOEA [None]
